FAERS Safety Report 21571141 (Version 1)
Quarter: 2022Q4

REPORT INFORMATION
  Report Type: Spontaneous
  Country: US (occurrence: US)
  Receive Date: 20221109
  Receipt Date: 20221109
  Transmission Date: 20230112
  Serious: Yes (Hospitalization)
  Sender: FDA-Public Use
  Company Number: US-LUPIN PHARMACEUTICALS INC.-2022-13134

PATIENT
  Age: 55 Year
  Sex: Male

DRUGS (6)
  1. AZITHROMYCIN [Suspect]
     Active Substance: AZITHROMYCIN
     Indication: COVID-19 pneumonia
     Dosage: 500 MILLIGRAM, QD
     Route: 065
  2. METHYLPREDNISOLONE [Suspect]
     Active Substance: METHYLPREDNISOLONE
     Indication: COVID-19 pneumonia
     Dosage: 40 MILLIGRAM, QD
     Route: 065
  3. TOCILIZUMAB [Suspect]
     Active Substance: TOCILIZUMAB
     Indication: COVID-19 pneumonia
     Dosage: 324 MILLIGRAM, SINGLE SHOT
     Route: 058
  4. REMDESIVIR [Suspect]
     Active Substance: REMDESIVIR
     Indication: COVID-19 pneumonia
     Dosage: 200 MILLIGRAM, QD (FOR FIRST DAY)
     Route: 065
  5. REMDESIVIR [Suspect]
     Active Substance: REMDESIVIR
     Dosage: 100 MILLIGRAM, QD (FOR FURTHER 4 DAYS)
     Route: 065
  6. ENOXAPARIN [Suspect]
     Active Substance: ENOXAPARIN
     Indication: COVID-19 pneumonia
     Dosage: 6000 INTERNATIONAL UNIT, BID
     Route: 065

REACTIONS (2)
  - Drug ineffective for unapproved indication [Unknown]
  - Off label use [Unknown]
